FAERS Safety Report 9367689 (Version 2)
Quarter: 2013Q3

REPORT INFORMATION
  Report Type: Report from Study
  Country: AU (occurrence: AU)
  Receive Date: 20130625
  Receipt Date: 20130827
  Transmission Date: 20140515
  Serious: Yes (Death)
  Sender: FDA-Public Use
  Company Number: AU-GILEAD-2013-0077750

PATIENT
  Sex: Male

DRUGS (5)
  1. TENOFOVIR DISOPROXIL FUMARATE [Suspect]
     Indication: HIV INFECTION
     Dosage: UNK
     Dates: start: 20110307, end: 20110909
  2. LOPINAVIR W/RITONAVIR [Suspect]
     Indication: HIV INFECTION
     Dosage: UNK
     Dates: start: 20110307, end: 20110909
  3. RIFABUTIN [Concomitant]
     Dosage: 150 MG, QD
     Dates: end: 20110909
  4. ISONIAZID [Concomitant]
     Dosage: 300 MG, QD
     Dates: end: 20110909
  5. CO-TRIMOXAZOLE DS [Concomitant]
     Indication: PROPHYLAXIS
     Dosage: UNK
     Dates: end: 20110818

REACTIONS (1)
  - Renal failure [Fatal]
